FAERS Safety Report 11272977 (Version 1)
Quarter: 2015Q3

REPORT INFORMATION
  Report Type: Spontaneous
  Country: US (occurrence: None)
  Receive Date: 20150714
  Receipt Date: 20150714
  Transmission Date: 20151125
  Serious: Yes (Disabling, Other)
  Sender: FDA-Public Use
  Company Number: None

PATIENT
  Age: 31 Year
  Sex: Female
  Weight: 108.86 kg

DRUGS (21)
  1. CYMBALTA [Suspect]
     Active Substance: DULOXETINE HYDROCHLORIDE
     Indication: DEPRESSION
     Dosage: 1 PILL
     Route: 048
     Dates: start: 20121101, end: 20150619
  2. TEMAZEPAM. [Concomitant]
     Active Substance: TEMAZEPAM
  3. ASPIRIN. [Concomitant]
     Active Substance: ASPIRIN
  4. CYMBALTA [Suspect]
     Active Substance: DULOXETINE HYDROCHLORIDE
     Indication: PAIN
     Dosage: 1 PILL
     Route: 048
     Dates: start: 20121101, end: 20150619
  5. PROMETHAZINE [Concomitant]
     Active Substance: PROMETHAZINE\PROMETHAZINE HYDROCHLORIDE
  6. B COMPLEX WITH FOLIC ACID [Concomitant]
  7. CRANBERRY/PROBIOTICS [Concomitant]
  8. BENADRYL [Concomitant]
     Active Substance: DIPHENHYDRAMINE HYDROCHLORIDE
  9. ALEVE [Concomitant]
     Active Substance: NAPROXEN SODIUM
  10. VITAMIN B12 [Concomitant]
     Active Substance: CYANOCOBALAMIN
  11. STOOL SOFTENER [Concomitant]
     Active Substance: DOCUSATE CALCIUM
  12. PROPRANALOL ER [Concomitant]
  13. OXYCONTIN [Concomitant]
     Active Substance: OXYCODONE HYDROCHLORIDE
  14. AMINO ACIDS [Concomitant]
     Active Substance: AMINO ACIDS
  15. SUDAFED [Concomitant]
     Active Substance: PSEUDOEPHEDRINE HYDROCHLORIDE
  16. PERCOCET [Concomitant]
     Active Substance: ACETAMINOPHEN\OXYCODONE HYDROCHLORIDE
  17. SKELAXIN [Concomitant]
     Active Substance: METAXALONE
  18. MULTIVITAMIN (CENTRUM) [Concomitant]
  19. TUMS CHEWS [Concomitant]
  20. ZOFRAN [Concomitant]
     Active Substance: ONDANSETRON HYDROCHLORIDE
  21. CYMBALTA [Suspect]
     Active Substance: DULOXETINE HYDROCHLORIDE
     Indication: GENERALISED ANXIETY DISORDER
     Dosage: 1 PILL
     Route: 048
     Dates: start: 20121101, end: 20150619

REACTIONS (12)
  - Vomiting [None]
  - Feeling jittery [None]
  - Nausea [None]
  - Neuralgia [None]
  - Tremor [None]
  - Anxiety [None]
  - Mood swings [None]
  - Panic attack [None]
  - Insomnia [None]
  - Drug withdrawal syndrome [None]
  - Paraesthesia [None]
  - Headache [None]

NARRATIVE: CASE EVENT DATE: 20150601
